FAERS Safety Report 10060940 (Version 2)
Quarter: 2014Q2

REPORT INFORMATION
  Report Type: Spontaneous
  Country: PT (occurrence: PT)
  Receive Date: 20140404
  Receipt Date: 20140404
  Transmission Date: 20141212
  Serious: Yes (Hospitalization, Other)
  Sender: FDA-Public Use
  Company Number: US-ASTRAZENECA-2014SE19607

PATIENT
  Age: 177 Day
  Sex: Female
  Weight: 5.7 kg

DRUGS (6)
  1. SYNAGIS [Suspect]
     Indication: ANTIVIRAL PROPHYLAXIS
     Route: 030
     Dates: start: 20131024, end: 20140213
  2. SYNAGIS [Suspect]
     Indication: PREMATURE BABY
     Route: 030
     Dates: start: 20131024, end: 20140213
  3. SYNAGIS [Suspect]
     Indication: BRONCHOPULMONARY DYSPLASIA
     Route: 030
     Dates: start: 20131024, end: 20140213
  4. SYNAGIS [Suspect]
     Indication: ANTIVIRAL PROPHYLAXIS
     Route: 030
  5. SYNAGIS [Suspect]
     Indication: PREMATURE BABY
     Route: 030
  6. SYNAGIS [Suspect]
     Indication: BRONCHOPULMONARY DYSPLASIA
     Route: 030

REACTIONS (3)
  - Pneumonia [Unknown]
  - Sepsis [Unknown]
  - Respiratory syncytial virus bronchiolitis [Recovering/Resolving]
